FAERS Safety Report 7619165-3 (Version None)
Quarter: 2011Q3

REPORT INFORMATION
  Report Type: 
  Country: None (occurrence: None)
  Receive Date: 20110718
  Receipt Date: 20110708
  Transmission Date: 20111222
  Serious: Yes (Hospitalization)
  Sender: FDA-Public Use
  Company Number: PHHY2011JP52680

PATIENT
  Sex: Female
  Weight: 42 kg

DRUGS (2)
  1. FAMVIR [Suspect]
     Dosage: 250 MG, UNK
     Route: 048
     Dates: start: 20110603
  2. FAMVIR [Suspect]
     Indication: HERPES ZOSTER
     Dosage: 500 MG, TID
     Route: 048
     Dates: start: 20110531, end: 20110601

REACTIONS (2)
  - LOSS OF CONSCIOUSNESS [None]
  - BLOOD PRESSURE DECREASED [None]
